FAERS Safety Report 9980753 (Version 1)
Quarter: 2014Q1

REPORT INFORMATION
  Report Type: Spontaneous
  Country: NL (occurrence: NL)
  Receive Date: 20140307
  Receipt Date: 20140307
  Transmission Date: 20141002
  Serious: Yes (Hospitalization, Congenital Anomaly)
  Sender: FDA-Public Use
  Company Number: NL-009507513-1403NLD002718

PATIENT
  Age: 1 Day
  Sex: Male

DRUGS (2)
  1. AMITRIPTYLINE HYDROCHLORIDE [Suspect]
     Indication: DEPRESSION
     Dosage: 2 TIMES PER 1 DAYS 25 MG
     Route: 064
     Dates: start: 2004
  2. ASCORBIC ACID [Suspect]
     Indication: ORAL HERPES
     Dosage: 1 TIME PER 1 DAY 1000 MG
     Route: 064
     Dates: start: 2012, end: 201203

REACTIONS (2)
  - Cleft palate [Not Recovered/Not Resolved]
  - Foetal exposure during pregnancy [Recovered/Resolved]
